FAERS Safety Report 7020735-4 (Version None)
Quarter: 2010Q3

REPORT INFORMATION
  Report Type: 
  Country: None (occurrence: None)
  Receive Date: 20100927
  Receipt Date: 20100915
  Transmission Date: 20110219
  Serious: Yes (Hospitalization)
  Sender: FDA-Public Use
  Company Number: B0674551A

PATIENT
  Age: 66 Year
  Sex: Female

DRUGS (6)
  1. ROPINIROLE HYDROCHLORIDE [Suspect]
     Indication: PARKINSON'S DISEASE
  2. CABERGOLINE [Suspect]
  3. PERGOLIDE MESYLATE [Suspect]
  4. LEVODOPA (FORMULATION UNKNOWN) (GENERIC) (LEVODOPA) [Suspect]
  5. LEVODOPA (FORMULATION UNKNOWN) (GENERIC) (LEVODOPA) [Suspect]
  6. ENTACAPONE [Suspect]

REACTIONS (8)
  - DOPAMINE DYSREGULATION SYNDROME [None]
  - DYSKINESIA [None]
  - HALLUCINATION [None]
  - HYPOMANIA [None]
  - PERSECUTORY DELUSION [None]
  - SELF INJURIOUS BEHAVIOUR [None]
  - STEREOTYPY [None]
  - SUICIDAL BEHAVIOUR [None]
